FAERS Safety Report 14174133 (Version 1)
Quarter: 2017Q4

REPORT INFORMATION
  Report Type: Spontaneous
  Country: CA (occurrence: CA)
  Receive Date: 20171109
  Receipt Date: 20171109
  Transmission Date: 20180321
  Serious: Yes (Other)
  Sender: FDA-Public Use
  Company Number: CA-ORION CORPORATION ORION PHARMA-TREX2017-3449

PATIENT
  Age: 83 Year
  Sex: Female

DRUGS (6)
  1. MORPHINE [Concomitant]
     Active Substance: MORPHINE
     Route: 065
  2. ACTEMRA [Suspect]
     Active Substance: TOCILIZUMAB
     Route: 042
  3. DILAUDID [Concomitant]
     Active Substance: HYDROMORPHONE HYDROCHLORIDE
     Route: 065
  4. METHOTREXATE (TRADE NAME UNKNOWN) [Suspect]
     Active Substance: METHOTREXATE
     Indication: RHEUMATOID ARTHRITIS
     Route: 065
  5. ENBREL [Suspect]
     Active Substance: ETANERCEPT
     Indication: RHEUMATOID ARTHRITIS
     Route: 058
  6. ORENCIA [Suspect]
     Active Substance: ABATACEPT
     Route: 042

REACTIONS (16)
  - Hand deformity [Unknown]
  - Impaired healing [Unknown]
  - Drug hypersensitivity [Unknown]
  - Synovitis [Unknown]
  - Drug effect decreased [Unknown]
  - Burning sensation [Unknown]
  - Headache [Unknown]
  - Loss of personal independence in daily activities [Unknown]
  - Pneumonitis [Unknown]
  - Drug effect incomplete [Unknown]
  - Lung disorder [Unknown]
  - Rheumatoid arthritis [Unknown]
  - Pain [Unknown]
  - Toe amputation [Unknown]
  - Gait disturbance [Unknown]
  - Mobility decreased [Unknown]
